FAERS Safety Report 9500231 (Version 1)
Quarter: 2013Q3

REPORT INFORMATION
  Report Type: Spontaneous
  Country: US (occurrence: US)
  Receive Date: 20130905
  Receipt Date: 20130905
  Transmission Date: 20140515
  Serious: Yes (Hospitalization, Other)
  Sender: FDA-Public Use
  Company Number: US-AMGEN-USASP2013061361

PATIENT
  Age: 62 Year
  Sex: Male

DRUGS (1)
  1. ENBREL [Suspect]
     Indication: ANKYLOSING SPONDYLITIS
     Dosage: 50 MG, QWK
     Route: 065
     Dates: start: 19990401

REACTIONS (6)
  - Medical device removal [Recovered/Resolved]
  - Staphylococcal infection [Recovered/Resolved]
  - Arthritis [Recovered/Resolved]
  - Oedema peripheral [Recovered/Resolved]
  - Nodule [Recovered/Resolved]
  - Post procedural infection [Recovered/Resolved]
